FAERS Safety Report 9290996 (Version 2)
Quarter: 2013Q2

REPORT INFORMATION
  Report Type: Spontaneous
  Country: JP (occurrence: JP)
  Receive Date: 20130515
  Receipt Date: 20130607
  Transmission Date: 20140414
  Serious: Yes (Hospitalization)
  Sender: FDA-Public Use
  Company Number: JP-009507513-1305JPN008992

PATIENT
  Age: 80 Year
  Sex: Female

DRUGS (7)
  1. BONALON [Suspect]
     Indication: OSTEOPOROSIS
     Dosage: 35 MG/WEEK
     Route: 048
     Dates: end: 20130401
  2. ONEALFA [Concomitant]
     Indication: OSTEOPOROSIS
     Dosage: 05 MICROGRAM/DAY
     Route: 048
  3. PREMINENT TABLETS [Concomitant]
     Indication: HYPERTENSION
     Dosage: UNK
     Route: 048
  4. PLAVIX [Concomitant]
     Indication: CEREBRAL INFARCTION
     Dosage: 75 MG/DAY
     Route: 048
  5. NORVASC [Concomitant]
     Indication: HYPERTENSION
     Dosage: 5 MG/DAY
     Route: 048
  6. RYO-KEI-JUTSU-KAN-TO [Concomitant]
     Indication: DIZZINESS
     Dosage: 7.5 G/DAY
     Route: 048
  7. ALINAMIN F (FURSULTIAMINE HYDROCHLORIDE) [Concomitant]
     Indication: VITAMIN B1 DEFICIENCY
     Dosage: 75 MG/DAY
     Route: 048

REACTIONS (3)
  - Chills [Unknown]
  - Osteomyelitis [Unknown]
  - Pyrexia [Unknown]
